FAERS Safety Report 5469594-1 (Version None)
Quarter: 2007Q3

REPORT INFORMATION
  Report Type: 
  Country: None (occurrence: None)
  Receive Date: 20070925
  Receipt Date: 20070925
  Transmission Date: 20080115
  Serious: Yes (Hospitalization)
  Sender: FDA-Public Use
  Company Number: None

PATIENT
  Age: 53 Year
  Sex: Male
  Weight: 27.6694 kg

DRUGS (1)
  1. AMLODIPINE BESYLATE AND BENAZEPRIL HCL [Suspect]
     Indication: HYPERTENSION
     Dosage: 5/20MG BID PO
     Route: 048
     Dates: start: 20031107, end: 20070213

REACTIONS (4)
  - BLOOD POTASSIUM INCREASED [None]
  - ESCHERICHIA URINARY TRACT INFECTION [None]
  - HYPERTENSIVE NEPHROPATHY [None]
  - NEPHROSCLEROSIS [None]
